FAERS Safety Report 17085435 (Version 1)
Quarter: 2019Q4

REPORT INFORMATION
  Report Type: Spontaneous
  Country: CA (occurrence: CA)
  Receive Date: 20191127
  Receipt Date: 20191127
  Transmission Date: 20200122
  Serious: Yes (Life-Threatening, Hospitalization, Other)
  Sender: FDA-Public Use
  Company Number: None

PATIENT
  Age: 73 Year
  Sex: Male
  Weight: 77.85 kg

DRUGS (1)
  1. TRULICITY [Suspect]
     Active Substance: DULAGLUTIDE
     Indication: DIABETES MELLITUS
     Dosage: ?          OTHER FREQUENCY:WEEKLY;?
     Route: 030
     Dates: start: 20191115, end: 20191123

REACTIONS (14)
  - Chest pain [None]
  - Visual impairment [None]
  - Back pain [None]
  - Dizziness [None]
  - Speech disorder [None]
  - Syncope [None]
  - Coma [None]
  - Choking [None]
  - Dyspnoea [None]
  - Seizure [None]
  - Chills [None]
  - Vomiting [None]
  - Loss of consciousness [None]
  - Neck pain [None]

NARRATIVE: CASE EVENT DATE: 20191123
